FAERS Safety Report 5656032-9 (Version None)
Quarter: 2008Q1

REPORT INFORMATION
  Report Type: 
  Country: None (occurrence: None)
  Receive Date: 20080307
  Receipt Date: 20080227
  Transmission Date: 20080703
  Serious: Yes (Other)
  Sender: FDA-Public Use
  Company Number: BE-PFIZER INC-2008018826

PATIENT
  Sex: Female

DRUGS (3)
  1. LIPITOR [Suspect]
     Route: 048
  2. ESCITALOPRAM OXALATE [Concomitant]
  3. CREON [Concomitant]

REACTIONS (2)
  - LUMBAR SPINAL STENOSIS [None]
  - NEUROPATHY PERIPHERAL [None]
